FAERS Safety Report 11425392 (Version 1)
Quarter: 2015Q3

REPORT INFORMATION
  Report Type: Spontaneous
  Country: US (occurrence: US)
  Receive Date: 20150821
  Receipt Date: 20150821
  Transmission Date: 20151125
  Serious: No
  Sender: FDA-Public Use
  Company Number: US-ELI_LILLY_AND_COMPANY-US201103002402

PATIENT
  Sex: Female
  Weight: 90.7 kg

DRUGS (3)
  1. PREVACID [Concomitant]
     Active Substance: LANSOPRAZOLE
  2. HUMULIN 70/30 [Suspect]
     Active Substance: INSULIN HUMAN
  3. ACTOS [Concomitant]
     Active Substance: PIOGLITAZONE HYDROCHLORIDE
     Dosage: 30 MG, DAILY (1/D)

REACTIONS (7)
  - Listless [Recovered/Resolved]
  - Vision blurred [Recovered/Resolved]
  - Swelling [Recovered/Resolved]
  - Hunger [Recovered/Resolved]
  - Pain in jaw [Recovered/Resolved]
  - Hypoglycaemia [Recovered/Resolved]
  - Heart rate increased [Recovered/Resolved]
